FAERS Safety Report 8905874 (Version 1)
Quarter: 2012Q4

REPORT INFORMATION
  Report Type: 
  Country: US (occurrence: US)
  Receive Date: 20121113
  Receipt Date: 20121113
  Transmission Date: 20130627
  Serious: No
  Sender: FDA-Public Use
  Company Number: US-ASTRAZENECA-2012SE84701

PATIENT
  Age: 24785 Day
  Sex: Male
  Weight: 79.4 kg

DRUGS (3)
  1. PRILOSEC [Suspect]
     Route: 048
  2. CRESTOR [Suspect]
     Route: 048
     Dates: start: 2007, end: 20121105
  3. AMLODIPINE [Concomitant]
     Indication: HYPERTENSION

REACTIONS (4)
  - Blood glucose increased [Unknown]
  - Arthralgia [Unknown]
  - Pyrexia [Unknown]
  - Arthralgia [Unknown]
